FAERS Safety Report 17508894 (Version 1)
Quarter: 2020Q1

REPORT INFORMATION
  Report Type: Spontaneous
  Country: US (occurrence: US)
  Receive Date: 20200305
  Receipt Date: 20200305
  Transmission Date: 20200409
  Serious: Yes (Disabling, Other)
  Sender: FDA-Public Use
  Company Number: None

PATIENT
  Age: 70 Year
  Sex: Female
  Weight: 81 kg

DRUGS (10)
  1. FOLIC ACID. [Concomitant]
     Active Substance: FOLIC ACID
  2. MONTELUKAST [Suspect]
     Active Substance: MONTELUKAST SODIUM
     Indication: MULTIPLE ALLERGIES
     Route: 048
  3. MULTIVITAMIN [Concomitant]
     Active Substance: VITAMINS
  4. LAMICTAL [Concomitant]
     Active Substance: LAMOTRIGINE
  5. FISH OIL [Concomitant]
     Active Substance: FISH OIL
  6. MONTELUKAST [Concomitant]
     Active Substance: MONTELUKAST SODIUM
  7. ROPINEROLE [Concomitant]
     Active Substance: ROPINIROLE
  8. METHOTREXATE. [Concomitant]
     Active Substance: METHOTREXATE
  9. BIOTIN [Concomitant]
     Active Substance: BIOTIN
  10. MONTELUKAST [Suspect]
     Active Substance: MONTELUKAST SODIUM
     Indication: ASTHMA
     Route: 048

REACTIONS (6)
  - Abdominal pain upper [None]
  - Mood altered [None]
  - Anxiety [None]
  - Panic attack [None]
  - Bipolar disorder [None]
  - Pain in extremity [None]
